FAERS Safety Report 24629796 (Version 1)
Quarter: 2024Q4

REPORT INFORMATION
  Report Type: Spontaneous
  Country: US (occurrence: US)
  Receive Date: 20241118
  Receipt Date: 20241118
  Transmission Date: 20250115
  Serious: Yes (Hospitalization, Other)
  Sender: Unknown Manufacturer
  Company Number: US-862174955-ML2024-05961

PATIENT
  Age: 25 Year
  Sex: Female

DRUGS (1)
  1. ACETAZOLAMIDE [Suspect]
     Active Substance: ACETAZOLAMIDE
     Indication: Idiopathic intracranial hypertension
     Dosage: ON ORAL ACETAZOLAMIDE 250 MG PER DAY
     Route: 048

REACTIONS (2)
  - Rhabdomyolysis [Unknown]
  - Hypokalaemia [Unknown]
